FAERS Safety Report 5501864-0 (Version None)
Quarter: 2007Q4

REPORT INFORMATION
  Report Type: 
  Country: None (occurrence: None)
  Receive Date: 20071030
  Receipt Date: 20070621
  Transmission Date: 20080405
  Serious: No
  Sender: FDA-Public Use
  Company Number: A0659214A

PATIENT
  Age: 68 Year
  Sex: Female

DRUGS (2)
  1. SEREVENT [Suspect]
     Indication: CHRONIC OBSTRUCTIVE PULMONARY DISEASE
     Dosage: 1PUFF TWICE PER DAY
     Route: 055
  2. LASIX [Concomitant]

REACTIONS (10)
  - BLEPHAROSPASM [None]
  - CHEST DISCOMFORT [None]
  - DRY MOUTH [None]
  - DYSPNOEA [None]
  - EYE DISORDER [None]
  - GINGIVAL PAIN [None]
  - NASAL DRYNESS [None]
  - RASH [None]
  - URTICARIA [None]
  - WHEEZING [None]
